FAERS Safety Report 9679892 (Version 1)
Quarter: 2013Q4

REPORT INFORMATION
  Report Type: Spontaneous
  Country: US (occurrence: US)
  Receive Date: 20131110
  Receipt Date: 20131110
  Transmission Date: 20140711
  Serious: No
  Sender: FDA-Public Use
  Company Number: US-009507513-1310USA014608

PATIENT
  Age: 75 Year
  Sex: Female

DRUGS (3)
  1. DULERA [Suspect]
     Indication: ASTHMA PROPHYLAXIS
     Dosage: 2 PUFFS, BID (INHR EA 1 STANDARD DOSE OF 13)
     Route: 055
     Dates: start: 201308
  2. ARIMIDEX [Concomitant]
     Indication: BREAST CANCER
     Dosage: UNK
     Dates: end: 2013
  3. FOSAMAX [Concomitant]
     Dosage: UNK
     Dates: end: 2013

REACTIONS (6)
  - Malaise [Unknown]
  - Dyspnoea [Unknown]
  - Asthenia [Recovered/Resolved]
  - Drug dose omission [Unknown]
  - Product container issue [Unknown]
  - Device malfunction [Unknown]
